FAERS Safety Report 6250032-6 (Version None)
Quarter: 2009Q2

REPORT INFORMATION
  Report Type: 
  Country: None (occurrence: None)
  Receive Date: 20090629
  Receipt Date: 20090618
  Transmission Date: 20091009
  Serious: Yes (Hospitalization, Other)
  Sender: FDA-Public Use
  Company Number: PHEH2009US05403

PATIENT
  Age: 16 Year
  Sex: Female

DRUGS (3)
  1. CLOZARIL [Suspect]
     Indication: SCHIZOPHRENIA
     Dosage: 100MG AM AND 400MG HS
     Route: 048
  2. CLOZARIL [Suspect]
     Dosage: 100MG AM AND 400MG HS
     Route: 048
  3. ABILIFY [Suspect]

REACTIONS (1)
  - PSYCHOTIC BEHAVIOUR [None]
